FAERS Safety Report 4587329-1 (Version None)
Quarter: 2005Q1

REPORT INFORMATION
  Report Type: 
  Country: None (occurrence: None)
  Receive Date: 20050215
  Receipt Date: 20050204
  Transmission Date: 20050727
  Serious: Yes (Death)
  Sender: FDA-Public Use
  Company Number: 3285GB

PATIENT
  Age: 75 Year
  Sex: Male
  Weight: 82 kg

DRUGS (10)
  1. COLGATE TOTAL [Suspect]
     Indication: DENTAL PLAQUE
     Dosage: NI 2X/DAY ORAL
     Route: 048
     Dates: start: 20030204, end: 20041222
  2. COLGATE TOTAL [Suspect]
     Indication: GINGIVITIS
     Dosage: NI 2X/DAY ORAL
     Route: 048
     Dates: start: 20030204, end: 20041222
  3. PLAVIX [Concomitant]
  4. AMIODRARONE [Concomitant]
  5. METOPROLOL TARTRATE [Concomitant]
  6. PRAVASTATIN [Concomitant]
  7. RAMIPRIL [Concomitant]
  8. LOSEC [Concomitant]
  9. IMDUR [Concomitant]
  10. MOBIC [Concomitant]

REACTIONS (1)
  - CARDIAC FAILURE [None]
